FAERS Safety Report 10029207 (Version 1)
Quarter: 2014Q1

REPORT INFORMATION
  Report Type: Spontaneous
  Country: CH (occurrence: CH)
  Receive Date: 20140321
  Receipt Date: 20140321
  Transmission Date: 20141002
  Serious: Yes (Other)
  Sender: FDA-Public Use
  Company Number: PHHY2014CH031169

PATIENT
  Age: 19 Year
  Sex: Female

DRUGS (12)
  1. CLOPIN ECO [Suspect]
     Dosage: 25 MG, UNK
     Dates: start: 20130621, end: 20130623
  2. CLOPIN ECO [Suspect]
     Dosage: 50 MG, UNK
     Dates: start: 20130624, end: 20130625
  3. CLOPIN ECO [Suspect]
     Dosage: 75 MG, UNK
     Dates: start: 20130626, end: 20130627
  4. SOLIAN [Suspect]
     Dosage: 100 MG, UNK
     Dates: start: 20130417, end: 20130419
  5. SOLIAN [Suspect]
     Dosage: 200 MG, UNK
     Dates: start: 20130420, end: 20130422
  6. SOLIAN [Suspect]
     Dosage: 300 MG, UNK
     Dates: start: 20130423, end: 20130425
  7. SOLIAN [Suspect]
     Dosage: 400 MG, UNK
     Dates: start: 20130426, end: 20130515
  8. SOLIAN [Suspect]
     Dosage: 600 MG, UNK
     Dates: start: 20130516, end: 20130522
  9. SOLIAN [Suspect]
     Dosage: 800 MG, UNK
     Dates: start: 20130523, end: 20130702
  10. SOLIAN [Suspect]
     Dosage: 400 MG, UNK
     Dates: start: 20130703, end: 20130703
  11. SOLIAN [Suspect]
     Dosage: 200 MG, UNK
     Dates: start: 20130704, end: 20130707
  12. CLOPIN ECO [Suspect]
     Dosage: 12.5 MG, UNK
     Dates: start: 20130619, end: 20130620

REACTIONS (2)
  - Hyperprolactinaemia [Recovering/Resolving]
  - Amenorrhoea [Recovered/Resolved]
